FAERS Safety Report 12540345 (Version 1)
Quarter: 2016Q3

REPORT INFORMATION
  Report Type: Spontaneous
  Country: US (occurrence: US)
  Receive Date: 20160708
  Receipt Date: 20160708
  Transmission Date: 20161109
  Serious: No
  Sender: FDA-Public Use
  Company Number: US-PFIZER INC-2016297688

PATIENT
  Sex: Male

DRUGS (7)
  1. ACCUPRIL [Suspect]
     Active Substance: QUINAPRIL HYDROCHLORIDE
  2. CARDURA [Suspect]
     Active Substance: DOXAZOSIN MESYLATE
  3. VERSED [Suspect]
     Active Substance: MIDAZOLAM HYDROCHLORIDE
  4. DEMEROL [Suspect]
     Active Substance: MEPERIDINE HYDROCHLORIDE
  5. ATENOLOL. [Suspect]
     Active Substance: ATENOLOL
  6. FELODIPINE. [Suspect]
     Active Substance: FELODIPINE
  7. BACTRIM [Suspect]
     Active Substance: SULFAMETHOXAZOLE\TRIMETHOPRIM

REACTIONS (1)
  - Drug hypersensitivity [Unknown]
